FAERS Safety Report 12561097 (Version 1)
Quarter: 2016Q3

REPORT INFORMATION
  Report Type: Spontaneous
  Country: US (occurrence: US)
  Receive Date: 20160715
  Receipt Date: 20160715
  Transmission Date: 20161109
  Serious: No
  Sender: FDA-Public Use
  Company Number: US-AMGEN-USASP2016089437

PATIENT
  Age: 74 Year

DRUGS (20)
  1. WELLBUTRIN [Concomitant]
     Active Substance: BUPROPION HYDROCHLORIDE
     Dosage: 75 MG, UNK
     Dates: start: 20160314
  2. SYNTHROID [Concomitant]
     Active Substance: LEVOTHYROXINE SODIUM
     Dosage: 137 MUG, UNK
     Dates: start: 20160315
  3. CLEOCIN [Suspect]
     Active Substance: CLINDAMYCIN PHOSPHATE
     Indication: PRODUCT USED FOR UNKNOWN INDICATION
     Dosage: UNK
     Route: 065
  4. ELAVIL [Concomitant]
     Active Substance: AMITRIPTYLINE HYDROCHLORIDE
     Dosage: TAKE BY MOUTH NIGHTLY
     Route: 048
  5. NEXIUM [Concomitant]
     Active Substance: ESOMEPRAZOLE MAGNESIUM
     Dosage: TAKE 40 MG BY MOUTH EVERY MORNING BEFORE BREAKFAST
     Route: 048
  6. PLAQUENIL [Concomitant]
     Active Substance: HYDROXYCHLOROQUINE SULFATE
     Dosage: TAKE 2 TABLET BY MOUTH EVERY DAY
     Route: 048
     Dates: start: 20151112
  7. PYRIDIUM [Concomitant]
     Active Substance: PHENAZOPYRIDINE
     Indication: PAIN
     Dosage: TAKE 1 TABLET 100 MG TOTAL BY MOUTH 3 TIMES A DAY AS NEEDED FOR PAIN
     Route: 048
     Dates: start: 20160607
  8. ZYRTEC [Suspect]
     Active Substance: CETIRIZINE HYDROCHLORIDE
     Indication: PRODUCT USED FOR UNKNOWN INDICATION
     Dosage: 10 MG BY MOUTH EVERY ONE DAY
     Route: 048
  9. DIFLUCAN [Suspect]
     Active Substance: FLUCONAZOLE
     Indication: PRODUCT USED FOR UNKNOWN INDICATION
     Dosage: TAKE ONE TABLET 150 MG TOTAL BY MOUTH ONE TIME A WEEK
     Route: 048
     Dates: start: 20150702
  10. TEMOVATE [Concomitant]
     Active Substance: CLOBETASOL PROPIONATE
     Dosage: APPLY TOPICALLY TWO TIMES A DAY
     Route: 061
     Dates: start: 20160512
  11. HYDRODIURIL [Concomitant]
     Active Substance: HYDROCHLOROTHIAZIDE
     Indication: SWELLING
     Dosage: TAKE 1 TABLET BY MOUTH EVERY ONE DAY, DAILY AS NEEDED
     Route: 048
     Dates: start: 20150119, end: 20160119
  12. NORCO [Concomitant]
     Active Substance: ACETAMINOPHEN\HYDROCODONE BITARTRATE
     Dosage: TAKE ONE TABLET BY MOUTH 4 TIMES A DAY
     Route: 048
  13. FOCALIN [Concomitant]
     Active Substance: DEXMETHYLPHENIDATE HYDROCHLORIDE
     Dosage: TAKE 1 TABLET (10 MG TOTAL) BY MOUTH TWO TIMES A DAY
     Route: 048
     Dates: start: 20160613
  14. MAXAIR [Concomitant]
     Active Substance: PIRBUTEROL ACETATE
     Indication: WHEEZING
     Dosage: INHALE 2 PUFFS AS NEEDED
  15. ENBREL [Suspect]
     Active Substance: ETANERCEPT
     Indication: PRODUCT USED FOR UNKNOWN INDICATION
     Dosage: UNK
     Route: 065
  16. ZOLOFT [Suspect]
     Active Substance: SERTRALINE HYDROCHLORIDE
     Indication: PRODUCT USED FOR UNKNOWN INDICATION
     Dosage: TAKE 100 MG BY MOUTH EVERY ONE DAY
     Route: 048
  17. BENTYL [Concomitant]
     Active Substance: DICYCLOMINE HYDROCHLORIDE
     Dosage: 10 MG, UNK
     Dates: start: 20160524
  18. SINEQUAN [Concomitant]
     Active Substance: DOXEPIN HYDROCHLORIDE
     Dosage: TAKE 10 MG BY MOUTH NIGHTLY
     Route: 048
  19. LYRICA [Suspect]
     Active Substance: PREGABALIN
     Indication: PRODUCT USED FOR UNKNOWN INDICATION
     Dosage: TAKE 1 CAPSULE (75 MG TOTAL) 2 (TWO) TIMES A DAY
     Route: 048
     Dates: start: 20160609
  20. SUDAFED 12 HOUR [Concomitant]
     Active Substance: PSEUDOEPHEDRINE HYDROCHLORIDE
     Dosage: TAKE BY MOUTH 2 TIMES DAILY
     Route: 048

REACTIONS (1)
  - Drug hypersensitivity [Unknown]
